FAERS Safety Report 17673067 (Version 1)
Quarter: 2020Q2

REPORT INFORMATION
  Report Type: Other
  Country: US (occurrence: US)
  Receive Date: 20200415
  Receipt Date: 20200415
  Transmission Date: 20200713
  Serious: Yes (Disabling)
  Sender: FDA-Public Use
  Company Number: US-ALKERMES INC.-ALK-2019-006081

PATIENT
  Age: 55 Year
  Sex: Female
  Weight: 49.7 kg

DRUGS (1)
  1. VIVITROL [Suspect]
     Active Substance: NALTREXONE
     Indication: PRODUCT USED FOR UNKNOWN INDICATION
     Dosage: 380 MG, QMO
     Route: 030

REACTIONS (2)
  - Loss of personal independence in daily activities [Unknown]
  - Confusional state [Unknown]

NARRATIVE: CASE EVENT DATE: 20180101
